FAERS Safety Report 4890252-6 (Version None)
Quarter: 2006Q1

REPORT INFORMATION
  Report Type: 
  Country: None (occurrence: None)
  Receive Date: 20060124
  Receipt Date: 20050801
  Transmission Date: 20060701
  Serious: Yes (Death)
  Sender: FDA-Public Use
  Company Number: US-MERCK-0508USA00533

PATIENT
  Age: 54 Year
  Sex: Male
  Weight: 159 kg

DRUGS (1)
  1. VIOXX [Suspect]
     Indication: SHOULDER PAIN
     Route: 048
     Dates: start: 20020130, end: 20030824

REACTIONS (2)
  - CORONARY ARTERY DISEASE [None]
  - PNEUMONIA [None]
